FAERS Safety Report 23761397 (Version 3)
Quarter: 2025Q1

REPORT INFORMATION
  Report Type: Spontaneous
  Country: US (occurrence: US)
  Receive Date: 20240419
  Receipt Date: 20250311
  Transmission Date: 20250409
  Serious: Yes (Other)
  Sender: GLAXOSMITHKLINE
  Company Number: US-GLAXOSMITHKLINE-US2024047379

PATIENT

DRUGS (1)
  1. NUCALA [Suspect]
     Active Substance: MEPOLIZUMAB
     Indication: Product used for unknown indication
     Route: 058

REACTIONS (8)
  - Myocardial infarction [Unknown]
  - Asthma [Unknown]
  - Symptom recurrence [Not Recovered/Not Resolved]
  - Wheezing [Not Recovered/Not Resolved]
  - Productive cough [Unknown]
  - Dyspnoea [Unknown]
  - Illness [Unknown]
  - Product dose omission issue [Unknown]

NARRATIVE: CASE EVENT DATE: 20240401
